FAERS Safety Report 9643004 (Version 1)
Quarter: 2013Q4

REPORT INFORMATION
  Report Type: Spontaneous
  Country: FR (occurrence: FR)
  Receive Date: 20131024
  Receipt Date: 20131024
  Transmission Date: 20140711
  Serious: Yes (Other)
  Sender: FDA-Public Use
  Company Number: FR-JNJFOC-20131010952

PATIENT
  Age: 57 Year
  Sex: Female

DRUGS (4)
  1. REMICADE [Suspect]
     Indication: ANKYLOSING SPONDYLITIS
     Dosage: 2.381 MG
     Route: 042
     Dates: start: 201208, end: 201309
  2. BI-PROFENID [Concomitant]
     Route: 065
  3. IXPRIM [Concomitant]
     Route: 065
  4. LEVOTHYROX [Concomitant]
     Route: 065

REACTIONS (3)
  - Headache [Recovered/Resolved]
  - Photophobia [Unknown]
  - Nausea [Unknown]
